FAERS Safety Report 10433416 (Version 2)
Quarter: 2015Q3

REPORT INFORMATION
  Report Type: Spontaneous
  Country: US (occurrence: US)
  Receive Date: 20140905
  Receipt Date: 20150707
  Transmission Date: 20151125
  Serious: Yes (Life-Threatening, Hospitalization)
  Sender: FDA-Public Use
  Company Number: US-JNJFOC-20140903219

PATIENT
  Sex: Female

DRUGS (15)
  1. DIGOXIN. [Concomitant]
     Active Substance: DIGOXIN
     Route: 065
  2. POTASSIUM [Concomitant]
     Active Substance: POTASSIUM
     Route: 065
  3. XARELTO [Suspect]
     Active Substance: RIVAROXABAN
     Indication: CEREBROVASCULAR ACCIDENT PROPHYLAXIS
     Route: 048
     Dates: start: 20120723, end: 20130919
  4. LANTUS [Concomitant]
     Active Substance: INSULIN GLARGINE
     Route: 065
  5. CIMETIDINE [Concomitant]
     Active Substance: CIMETIDINE
     Route: 065
  6. XARELTO [Suspect]
     Active Substance: RIVAROXABAN
     Indication: THROMBOSIS PROPHYLAXIS
     Route: 048
     Dates: start: 20120723, end: 20130919
  7. XARELTO [Suspect]
     Active Substance: RIVAROXABAN
     Indication: ATRIAL FIBRILLATION
     Route: 048
     Dates: start: 20120723, end: 20130919
  8. FLUTICASONE [Concomitant]
     Active Substance: FLUTICASONE\FLUTICASONE PROPIONATE
     Route: 065
  9. ASPIRIN. [Suspect]
     Active Substance: ASPIRIN
     Indication: PRODUCT USED FOR UNKNOWN INDICATION
     Route: 065
  10. ALPRAZOLAM. [Concomitant]
     Active Substance: ALPRAZOLAM
     Route: 065
  11. METOLAZONE. [Concomitant]
     Active Substance: METOLAZONE
     Route: 065
  12. DILTIAZEM [Concomitant]
     Active Substance: DILTIAZEM
     Route: 065
  13. FUROSEMIDE. [Concomitant]
     Active Substance: FUROSEMIDE
     Route: 065
  14. PRAVASTATIN [Concomitant]
     Active Substance: PRAVASTATIN\PRAVASTATIN SODIUM
     Route: 065
  15. ASMANEX [Concomitant]
     Active Substance: MOMETASONE FUROATE
     Route: 065

REACTIONS (4)
  - Gastrointestinal haemorrhage [Unknown]
  - Cystitis haemorrhagic [Unknown]
  - Haemorrhagic anaemia [Unknown]
  - Haematuria [Recovered/Resolved]
